FAERS Safety Report 4711984-6 (Version None)
Quarter: 2005Q3

REPORT INFORMATION
  Report Type: 
  Country: None (occurrence: None)
  Receive Date: 20050711
  Receipt Date: 20050711
  Transmission Date: 20060218
  Serious: No
  Sender: FDA-Public Use
  Company Number: None

PATIENT
  Sex: Female
  Weight: 59.8748 kg

DRUGS (1)
  1. OXYCODONE [Suspect]
     Dosage: 70 MG BID

REACTIONS (6)
  - DIZZINESS [None]
  - HAEMORRHAGE [None]
  - HEADACHE [None]
  - NAUSEA [None]
  - PRURITUS [None]
  - RASH [None]
